FAERS Safety Report 4947878-0 (Version None)
Quarter: 2006Q1

REPORT INFORMATION
  Report Type: 
  Country: None (occurrence: None)
  Receive Date: 20060317
  Receipt Date: 20060317
  Transmission Date: 20060701
  Serious: Yes (Other)
  Sender: FDA-Public Use
  Company Number: None

PATIENT
  Sex: Female
  Weight: 60 kg

DRUGS (1)
  1. AMBIEN [Suspect]
     Indication: INSOMNIA
     Dosage: 10MG  POD   PO
     Route: 048
     Dates: start: 20041012, end: 20060314

REACTIONS (3)
  - AFFECT LABILITY [None]
  - AMNESIA [None]
  - HALLUCINATIONS, MIXED [None]
